FAERS Safety Report 9416431 (Version 4)
Quarter: 2014Q2

REPORT INFORMATION
  Report Type: Spontaneous
  Country: US (occurrence: US)
  Receive Date: 20130724
  Receipt Date: 20140509
  Transmission Date: 20141212
  Serious: No
  Sender: FDA-Public Use
  Company Number: US-PFIZER INC-2013214229

PATIENT
  Age: 83 Year
  Sex: Female

DRUGS (9)
  1. SUTENT [Suspect]
     Indication: RENAL CANCER
     Dosage: 25 MG, 1X/DAY
     Dates: start: 20100406
  2. SUTENT [Suspect]
     Dosage: 25 MG, UNK
     Dates: start: 20140204
  3. PRILOSEC [Concomitant]
     Dosage: UNK
  4. POTASSIUM [Concomitant]
     Dosage: UNK
  5. NORVASC [Concomitant]
     Dosage: UNK
  6. METFORMIN [Concomitant]
     Dosage: UNK
  7. HYDROCHLOROTHIAZIDE [Concomitant]
     Dosage: UNK
  8. ATENOLOL [Concomitant]
     Dosage: UNK
  9. CALCIUM [Concomitant]
     Dosage: UNK

REACTIONS (5)
  - Platelet count decreased [Unknown]
  - Fatigue [Unknown]
  - Plantar erythema [Unknown]
  - Pain in extremity [Unknown]
  - Blood glucose decreased [Unknown]
